FAERS Safety Report 9280780 (Version 3)
Quarter: 2014Q2

REPORT INFORMATION
  Report Type: Spontaneous
  Country: IT (occurrence: None)
  Receive Date: 20130503
  Receipt Date: 20140410
  Transmission Date: 20141212
  Serious: Yes (Hospitalization)
  Sender: FDA-Public Use
  Company Number: AUR-APL-2013-03491

PATIENT
  Age: 31 Year
  Sex: Male

DRUGS (2)
  1. SERTRALINE (SERTRALINE) (SERTRALINE) [Suspect]
     Indication: PRODUCT USED FOR UNKNOWN INDICATION
     Dosage: TOTAL
     Route: 048
     Dates: start: 20130325, end: 20130325
  2. XANAX (ALPRAZOLAM) [Suspect]
     Indication: PRODUCT USED FOR UNKNOWN INDICATION
     Dosage: TOTAL
     Route: 048
     Dates: start: 20130325, end: 20130325

REACTIONS (3)
  - Drug abuse [None]
  - Incorrect dose administered [None]
  - Vomiting [None]
